FAERS Safety Report 19675139 (Version 1)
Quarter: 2021Q3

REPORT INFORMATION
  Report Type: Spontaneous
  Country: US (occurrence: US)
  Receive Date: 20210809
  Receipt Date: 20210809
  Transmission Date: 20211014
  Serious: No
  Sender: FDA-Public Use
  Company Number: US-BRISTOL-MYERS SQUIBB COMPANY-BMS-2021-078114

PATIENT
  Age: 13 Year
  Sex: Female

DRUGS (4)
  1. ORENCIA [Suspect]
     Active Substance: ABATACEPT
     Indication: ACUTE LEUKAEMIA IN REMISSION
  2. ORENCIA [Suspect]
     Active Substance: ABATACEPT
     Indication: JUVENILE IDIOPATHIC ARTHRITIS
     Dosage: 87.5 MILLIGRAM, QWK
     Route: 058
     Dates: start: 202007
  3. ORENCIA [Suspect]
     Active Substance: ABATACEPT
     Indication: JUVENILE IDIOPATHIC ARTHRITIS
     Dosage: 87.5 MILLIGRAM, QWK
     Route: 058
     Dates: start: 202007
  4. ORENCIA [Suspect]
     Active Substance: ABATACEPT
     Indication: ACUTE LEUKAEMIA IN REMISSION

REACTIONS (2)
  - Arthralgia [Unknown]
  - Joint swelling [Unknown]
